FAERS Safety Report 13100465 (Version 1)
Quarter: 2017Q1

REPORT INFORMATION
  Report Type: Spontaneous
  Country: US (occurrence: US)
  Receive Date: 20170109
  Receipt Date: 20170109
  Transmission Date: 20170428
  Serious: No
  Sender: FDA-Public Use
  Company Number: None

PATIENT
  Age: 66 Year
  Sex: Male

DRUGS (1)
  1. SOMXL SKIN CARE CREAM (OZONE\SALICYLIC ACID) [Suspect]
     Active Substance: OZONE\SALICYLIC ACID
     Indication: ANOGENITAL WARTS
     Dosage: ?          QUANTITY:15 TEASPOON(S);?
     Dates: start: 20160809, end: 20160909

REACTIONS (2)
  - Drug ineffective [None]
  - Product label issue [None]

NARRATIVE: CASE EVENT DATE: 20160909
